FAERS Safety Report 4963728-0 (Version None)
Quarter: 2006Q1

REPORT INFORMATION
  Report Type: 
  Country: None (occurrence: None)
  Receive Date: 20060329
  Receipt Date: 20060215
  Transmission Date: 20060701
  Serious: Yes (Disabling, Other)
  Sender: FDA-Public Use
  Company Number: 2006-CZ-00683

PATIENT
  Age: 58 Year
  Sex: Male

DRUGS (9)
  1. CYCLOSPORINE [Suspect]
     Indication: IMMUNOSUPPRESSION
  2. BASILIXIMAB [Concomitant]
  3. METHYLPREDNISOLONE [Concomitant]
  4. MYCOPHENOLATE MOFETIL [Concomitant]
  5. PREDNISONE TAB [Concomitant]
  6. FENTANYL [Concomitant]
  7. PROPOFOL [Concomitant]
  8. MORPHINE [Concomitant]
  9. DEXMEDETOMIDINE [Concomitant]

REACTIONS (11)
  - BRAIN STEM INFARCTION [None]
  - COAGULOPATHY [None]
  - GRAND MAL CONVULSION [None]
  - HAEMOTHORAX [None]
  - HYPOREFLEXIA [None]
  - METABOLIC ENCEPHALOPATHY [None]
  - MOVEMENT DISORDER [None]
  - MUSCULAR WEAKNESS [None]
  - NEUROTOXICITY [None]
  - ORTHOSTATIC HYPOTENSION [None]
  - SOMNOLENCE [None]
